FAERS Safety Report 15637515 (Version 1)
Quarter: 2018Q4

REPORT INFORMATION
  Report Type: Spontaneous
  Country: US (occurrence: US)
  Receive Date: 20181120
  Receipt Date: 20181120
  Transmission Date: 20190205
  Serious: No
  Sender: FDA-Public Use
  Company Number: US-JNJFOC-20180513234

PATIENT
  Age: 68 Year
  Sex: Female
  Weight: 61 kg

DRUGS (8)
  1. JANUVIA [Concomitant]
     Active Substance: SITAGLIPTIN PHOSPHATE
  2. GLIPIZIDE. [Concomitant]
     Active Substance: GLIPIZIDE
  3. SIMVASTATIN. [Concomitant]
     Active Substance: SIMVASTATIN
  4. IMBRUVICA [Suspect]
     Active Substance: IBRUTINIB
     Indication: PRODUCT USED FOR UNKNOWN INDICATION
     Route: 048
     Dates: start: 20180312
  5. IMBRUVICA [Suspect]
     Active Substance: IBRUTINIB
     Indication: PRODUCT USED FOR UNKNOWN INDICATION
     Route: 048
     Dates: start: 20180403
  6. ACYCLOVIR. [Concomitant]
     Active Substance: ACYCLOVIR
  7. LOSARTAN. [Concomitant]
     Active Substance: LOSARTAN
  8. METFORMIN [Concomitant]
     Active Substance: METFORMIN HYDROCHLORIDE

REACTIONS (2)
  - Fluid retention [Unknown]
  - Diarrhoea [Unknown]

NARRATIVE: CASE EVENT DATE: 201803
